APPROVED DRUG PRODUCT: MYMETHAZINE FORTIS
Active Ingredient: PROMETHAZINE HYDROCHLORIDE
Strength: 25MG/5ML
Dosage Form/Route: SYRUP;ORAL
Application: A087996 | Product #001
Applicant: USL PHARMA INC
Approved: Jan 18, 1983 | RLD: No | RS: No | Type: DISCN